FAERS Safety Report 6312197-7 (Version None)
Quarter: 2009Q3

REPORT INFORMATION
  Report Type: 
  Country: None (occurrence: None)
  Receive Date: 20090817
  Receipt Date: 20090807
  Transmission Date: 20100115
  Serious: Yes (Other)
  Sender: FDA-Public Use
  Company Number: US-PFIZER INC-2009242852

PATIENT
  Sex: Male
  Weight: 83.46 kg

DRUGS (9)
  1. LIPITOR [Suspect]
     Indication: BLOOD CHOLESTEROL INCREASED
     Dosage: 20 MG, 1X/DAY
     Dates: end: 20090501
  2. BUMETANIDE [Concomitant]
  3. CYCLOSPORINE [Concomitant]
  4. PANTOPRAZOLE [Concomitant]
  5. CLONIDINE [Concomitant]
  6. VALSARTAN [Concomitant]
  7. LEVOTHYROXINE SODIUM [Concomitant]
  8. BENICAR [Concomitant]
  9. PREDNISONE [Concomitant]

REACTIONS (4)
  - COLONIC POLYP [None]
  - GASTROINTESTINAL HAEMORRHAGE [None]
  - LIPIDS ABNORMAL [None]
  - RHABDOMYOLYSIS [None]
